FAERS Safety Report 12815022 (Version 1)
Quarter: 2016Q4

REPORT INFORMATION
  Report Type: Spontaneous
  Country: US (occurrence: US)
  Receive Date: 20161005
  Receipt Date: 20161005
  Transmission Date: 20170207
  Serious: No
  Sender: FDA-Public Use
  Company Number: US-AMGEN-USASP2016007951

PATIENT
  Age: 79 Year
  Sex: Female

DRUGS (12)
  1. ZETIA [Concomitant]
     Active Substance: EZETIMIBE
  2. AGGRENOX [Concomitant]
     Active Substance: ASPIRIN\DIPYRIDAMOLE
  3. TRAMADOL. [Concomitant]
     Active Substance: TRAMADOL
  4. AMLODIPINE [Concomitant]
     Active Substance: AMLODIPINE BESYLATE
  5. METOPROLOL. [Concomitant]
     Active Substance: METOPROLOL
  6. METFORMIN [Concomitant]
     Active Substance: METFORMIN HYDROCHLORIDE
  7. LOSARTAN. [Concomitant]
     Active Substance: LOSARTAN
  8. RANITIDINE. [Concomitant]
     Active Substance: RANITIDINE
  9. BUSPAN [Concomitant]
  10. PRAVASTATIN. [Concomitant]
     Active Substance: PRAVASTATIN
  11. PROLIA [Suspect]
     Active Substance: DENOSUMAB
     Indication: OSTEOPOROSIS
     Dosage: 60 MG, Q6MO
     Route: 058
     Dates: start: 20150725
  12. PLASIL                             /00041901/ [Concomitant]
     Active Substance: METOCLOPRAMIDE

REACTIONS (1)
  - Myalgia [Recovered/Resolved]

NARRATIVE: CASE EVENT DATE: 20150725
